FAERS Safety Report 24878568 (Version 1)
Quarter: 2025Q1

REPORT INFORMATION
  Report Type: Spontaneous
  Country: US (occurrence: None)
  Receive Date: 20250122
  Receipt Date: 20250122
  Transmission Date: 20250408
  Serious: Yes (Hospitalization)
  Sender: FDA-CTU
  Company Number: None

PATIENT
  Age: 78 Year
  Sex: Male

DRUGS (1)
  1. APIXABAN [Suspect]
     Active Substance: APIXABAN
     Indication: Atrial fibrillation
     Dosage: FREQUENCY : TWICE A DAY;?
     Route: 048
     Dates: start: 20220927, end: 20240524

REACTIONS (8)
  - Cardiac failure congestive [None]
  - Chronic obstructive pulmonary disease [None]
  - Fall [None]
  - Anaemia [None]
  - Gastrointestinal haemorrhage [None]
  - Head injury [None]
  - Subdural haematoma [None]
  - Therapy cessation [None]

NARRATIVE: CASE EVENT DATE: 20240524
